FAERS Safety Report 8825169 (Version 1)
Quarter: 2012Q4

REPORT INFORMATION
  Report Type: 
  Country: US (occurrence: US)
  Receive Date: 20121004
  Receipt Date: 20121004
  Transmission Date: 20130627
  Serious: Yes (Death, Hospitalization)
  Sender: FDA-Public Use
  Company Number: US-GLAXOSMITHKLINE-A0995793A

PATIENT
  Age: 68 Year
  Sex: Male

DRUGS (11)
  1. ADVAIR [Suspect]
     Indication: PRODUCT USED FOR UNKNOWN INDICATION
     Dosage: 2PUFF Twice per day
     Route: 055
  2. LOVAZA [Suspect]
     Indication: PRODUCT USED FOR UNKNOWN INDICATION
     Dosage: 2MG Three times per day
     Route: 048
  3. PLAVIX [Concomitant]
  4. CARDIZEM LA [Concomitant]
  5. NEXIUM [Concomitant]
  6. PROVENTIL [Concomitant]
  7. SINGULAIR [Concomitant]
  8. LISINOPRIL [Concomitant]
  9. PREDNISON [Concomitant]
  10. HYDRALAZINE [Concomitant]
  11. HCTZ [Concomitant]

REACTIONS (1)
  - Pulmonary thrombosis [Fatal]
